FAERS Safety Report 6581825-3 (Version None)
Quarter: 2010Q1

REPORT INFORMATION
  Report Type: 
  Country: None (occurrence: None)
  Receive Date: 20100211
  Receipt Date: 20100211
  Transmission Date: 20100710
  Serious: Yes (Other)
  Sender: FDA-Public Use
  Company Number: None

PATIENT
  Sex: Male
  Weight: 72 kg

DRUGS (1)
  1. LAMOTRIGINE [Suspect]
     Indication: EPILEPSY
     Dosage: 200MG TABS 1 TABLET 3X DAY P.O.
     Route: 048
     Dates: start: 20100101

REACTIONS (4)
  - AGGRESSION [None]
  - ANGER [None]
  - IRRITABILITY [None]
  - PRODUCT SUBSTITUTION ISSUE [None]
